FAERS Safety Report 8177529-6 (Version None)
Quarter: 2012Q1

REPORT INFORMATION
  Report Type: 
  Country: None (occurrence: None)
  Receive Date: 20120301
  Receipt Date: 20120227
  Transmission Date: 20120608
  Serious: Yes (Hospitalization)
  Sender: FDA-Public Use
  Company Number: US-ACTELION-A-US2012-60183

PATIENT

DRUGS (2)
  1. TRACLEER [Suspect]
     Indication: PULMONARY ARTERIAL HYPERTENSION
     Dosage: UNK
     Route: 048
     Dates: start: 20090709
  2. CALCIUM CHANNEL BLOCKERS [Concomitant]

REACTIONS (4)
  - LOWER LIMB FRACTURE [None]
  - FALL [None]
  - SURGERY [None]
  - ANKLE OPERATION [None]
